FAERS Safety Report 7580748-0 (Version None)
Quarter: 2011Q2

REPORT INFORMATION
  Report Type: 
  Country: None (occurrence: None)
  Receive Date: 20110629
  Receipt Date: 20110624
  Transmission Date: 20111010
  Serious: Yes (Life-Threatening)
  Sender: FDA-Public Use
  Company Number: JP-PFIZER INC-2011140429

PATIENT
  Age: 63 Week
  Sex: Female
  Weight: 6.6 kg

DRUGS (13)
  1. SILDENAFIL CITRATE [Suspect]
     Dosage: 3 MG/DAY
     Dates: start: 20091031, end: 20091102
  2. LASIX [Concomitant]
     Indication: CARDIAC FAILURE
     Dosage: 24 MG/DAY
     Route: 048
     Dates: start: 20091031
  3. WARFARIN [Concomitant]
     Indication: ANTIPLATELET THERAPY
     Dosage: 0-6 G/DAY
     Route: 048
     Dates: start: 20091031
  4. UNASYN [Concomitant]
     Indication: POSTOPERATIVE CARE
     Dosage: UNK
     Route: 041
  5. MILRINONE [Concomitant]
     Indication: POSTOPERATIVE CARE
     Dosage: UNK
     Route: 041
     Dates: end: 20091101
  6. ALDACTONE [Concomitant]
     Indication: CARDIAC FAILURE
     Dosage: 24 MG/DAY
     Route: 048
     Dates: start: 20091031
  7. ACETYLSALICYLIC ACID [Concomitant]
     Indication: ANTIPLATELET THERAPY
     Dosage: 30 MG/DAY
     Route: 048
     Dates: start: 20091031
  8. NITROGLYCERIN [Concomitant]
     Indication: POSTOPERATIVE CARE
     Dosage: UNK
     Route: 041
     Dates: end: 20091101
  9. INOVAN [Concomitant]
     Indication: POSTOPERATIVE CARE
     Dosage: UNK
     Route: 041
     Dates: end: 20091001
  10. LASIX [Concomitant]
     Indication: POSTOPERATIVE CARE
     Dosage: UNK
     Route: 042
  11. SOLDEM 3 [Concomitant]
     Indication: POSTOPERATIVE CARE
     Dosage: UNK
     Route: 041
  12. ELASPOL [Concomitant]
     Indication: POSTOPERATIVE CARE
     Dosage: UNK
     Route: 041
     Dates: end: 20091101
  13. ALBUMIN ^BEHRING^ [Concomitant]
     Indication: POSTOPERATIVE CARE
     Dosage: UNK
     Route: 041

REACTIONS (1)
  - PULMONARY OEDEMA [None]
